FAERS Safety Report 4876981-9 (Version None)
Quarter: 2005Q4

REPORT INFORMATION
  Report Type: 
  Country: None (occurrence: None)
  Receive Date: 20051206
  Receipt Date: 20050920
  Transmission Date: 20060501
  Serious: No
  Sender: FDA-Public Use
  Company Number: USA0509108556

PATIENT
  Sex: Female

DRUGS (1)
  1. CYMBALTA [Suspect]
     Indication: PAIN IN EXTREMITY
     Dosage: 30 MG
     Dates: start: 20050919

REACTIONS (5)
  - ABDOMINAL PAIN UPPER [None]
  - BURNING SENSATION [None]
  - CHEST DISCOMFORT [None]
  - FEELING ABNORMAL [None]
  - HYPERHIDROSIS [None]
